FAERS Safety Report 16329265 (Version 1)
Quarter: 2019Q2

REPORT INFORMATION
  Report Type: Spontaneous
  Country: US (occurrence: US)
  Receive Date: 20190520
  Receipt Date: 20190520
  Transmission Date: 20190711
  Serious: No
  Sender: FDA-Public Use
  Company Number: US-BION-007601

PATIENT
  Age: 37 Year
  Sex: Female
  Weight: 62.6 kg

DRUGS (1)
  1. MOTRIN IB [Suspect]
     Active Substance: IBUPROFEN
     Indication: NECK PAIN
     Dosage: STRENGTH: 200 MG
     Route: 048
     Dates: start: 20181210, end: 20181211

REACTIONS (2)
  - Product use in unapproved indication [Not Recovered/Not Resolved]
  - Foreign body in respiratory tract [Recovered/Resolved]

NARRATIVE: CASE EVENT DATE: 20181210
